FAERS Safety Report 5961858-8 (Version None)
Quarter: 2008Q4

REPORT INFORMATION
  Report Type: 
  Country: None (occurrence: None)
  Receive Date: 20081121
  Receipt Date: 20080417
  Transmission Date: 20090506
  Serious: No
  Sender: FDA-Public Use
  Company Number: US-BRISTOL-MYERS SQUIBB COMPANY-14155998

PATIENT
  Age: 47 Year
  Sex: Female
  Weight: 113 kg

DRUGS (7)
  1. AVALIDE [Suspect]
     Indication: PROTEIN URINE PRESENT
  2. AVALIDE [Suspect]
     Indication: TYPE 2 DIABETES MELLITUS
  3. AVALIDE [Suspect]
     Indication: FLUID RETENTION
  4. SYNTHROID [Concomitant]
  5. GLUCOTROL [Concomitant]
  6. HUMALOG [Concomitant]
  7. INSULIN [Concomitant]

REACTIONS (6)
  - BLOOD GLUCOSE INCREASED [None]
  - DIZZINESS [None]
  - DRY EYE [None]
  - HEADACHE [None]
  - NAUSEA [None]
  - PRURITUS GENERALISED [None]
